FAERS Safety Report 26194851 (Version 1)
Quarter: 2025Q4

REPORT INFORMATION
  Report Type: Spontaneous
  Country: EU (occurrence: EU)
  Receive Date: 20251224
  Receipt Date: 20251224
  Transmission Date: 20260118
  Serious: Yes (Hospitalization, Other)
  Sender: Haleon PLC
  Company Number: EU-AFSSAPS-GR2023001488

PATIENT
  Age: 33 Year
  Sex: Female
  Weight: 90 kg

DRUGS (27)
  1. IBUPROFEN [Suspect]
     Active Substance: IBUPROFEN
     Indication: Headache
     Dosage: 400 MG X3/J
     Dates: start: 20230930, end: 20231005
  2. METHYLPREDNISOLONE [Suspect]
     Active Substance: METHYLPREDNISOLONE
     Indication: Product used for unknown indication
     Dosage: 500 MG
     Dates: start: 20230426, end: 20230426
  3. METHYLPREDNISOLONE [Suspect]
     Active Substance: METHYLPREDNISOLONE
     Dosage: 500 MG
     Dates: start: 20230427, end: 20230427
  4. BACTRIM [Suspect]
     Active Substance: SULFAMETHOXAZOLE\TRIMETHOPRIM
     Indication: Systemic lupus erythematosus
     Dosage: 1 DF, QD
     Dates: start: 20230426, end: 20231011
  5. BACTRIM [Suspect]
     Active Substance: SULFAMETHOXAZOLE\TRIMETHOPRIM
     Indication: Neutropenia
  6. BACTRIM [Suspect]
     Active Substance: SULFAMETHOXAZOLE\TRIMETHOPRIM
     Indication: Neutropenia
     Dosage: 1 IU, 1X/DAY
     Dates: start: 20230426, end: 20231011
  7. OBINUTUZUMAB [Suspect]
     Active Substance: OBINUTUZUMAB
     Indication: Systemic lupus erythematosus
     Dosage: 1000 MG, 1 TOTAL (D1, THEN D15 16/05/2023)
     Dates: start: 20230516, end: 20230516
  8. OBINUTUZUMAB [Suspect]
     Active Substance: OBINUTUZUMAB
     Dosage: 1000 MG, 1 TOTAL
     Dates: start: 20230426, end: 20230426
  9. OBINUTUZUMAB [Suspect]
     Active Substance: OBINUTUZUMAB
     Indication: Systemic lupus erythematosus
     Dosage: (D1, THEN D15 16MAY2023)
     Dates: start: 20230426, end: 20230516
  10. OBINUTUZUMAB [Suspect]
     Active Substance: OBINUTUZUMAB
     Indication: Lupus nephritis
  11. MYCOPHENOLATE MOFETIL [Suspect]
     Active Substance: MYCOPHENOLATE MOFETIL
     Indication: Systemic lupus erythematosus
     Dosage: 2500 MG (1000 MG IN THE MORNING, 500 MG AT NOON AND 1000 MG IN THE EVENING)
     Dates: start: 20210408, end: 20231011
  12. MYCOPHENOLATE MOFETIL [Suspect]
     Active Substance: MYCOPHENOLATE MOFETIL
     Indication: Lupus nephritis
     Dosage: 2500 MG, QD (1G-500MG-1G)
     Dates: end: 20231011
  13. CELLCEPT [Suspect]
     Active Substance: MYCOPHENOLATE MOFETIL
     Indication: Systemic lupus erythematosus
     Dosage: 2500 MG, QD (1G-500MG-1G)
     Dates: end: 20231011
  14. SOLU-MEDROL [Suspect]
     Active Substance: METHYLPREDNISOLONE SODIUM SUCCINATE
     Indication: Product used for unknown indication
     Dates: start: 20230516, end: 20230516
  15. SOLU-MEDROL [Suspect]
     Active Substance: METHYLPREDNISOLONE SODIUM SUCCINATE
     Dosage: UNK
  16. IBUPROFEN [Suspect]
     Active Substance: IBUPROFEN
     Indication: Sinus pain
     Dosage: 400 MG, 3X/DAY
     Dates: start: 20230930, end: 20231005
  17. SOLU-MEDROL [Suspect]
     Active Substance: METHYLPREDNISOLONE SODIUM SUCCINATE
     Indication: Product used for unknown indication
     Dates: start: 20230516, end: 20230516
  18. SPASFON [Concomitant]
     Indication: Abdominal pain
  19. PLAQUENIL [Concomitant]
     Active Substance: HYDROXYCHLOROQUINE SULFATE
     Indication: Product used for unknown indication
     Dosage: 400 MG (2 TABLETS IN THE EVENING)
  20. SYMBICORT [Concomitant]
     Active Substance: BUDESONIDE\FORMOTEROL FUMARATE DIHYDRATE
     Indication: Product used for unknown indication
     Dosage: 200 IU (1 PUFF PER DAY)
  21. LOVENOX [Concomitant]
     Active Substance: ENOXAPARIN SODIUM
     Indication: Product used for unknown indication
     Dosage: 4000 IU
  22. CALTRATE [Concomitant]
     Active Substance: CALCIUM CARBONATE
     Indication: Osteoporosis
  23. PREDNISONE [Concomitant]
     Active Substance: PREDNISONE
     Indication: Product used for unknown indication
     Dosage: 5 MG IN THE MORNING
     Dates: start: 20210719
  24. RENITEC [Concomitant]
     Indication: Systemic lupus erythematosus
     Dosage: 20 MG, QD (1 TABLET PER DAY IN THE MORNING)
     Dates: start: 20210408
  25. DOLIPRANE [Concomitant]
     Active Substance: ACETAMINOPHEN
     Indication: Headache
     Dosage: 4 G
  26. LEVOFLOXACIN [Concomitant]
     Active Substance: LEVOFLOXACIN
     Indication: Sinusitis
     Dosage: 500 MG
     Dates: start: 20231006, end: 20231011
  27. EUPANTOL [Concomitant]
     Active Substance: PANTOPRAZOLE SODIUM
     Indication: Product used for unknown indication
     Dosage: 20 MG
     Dates: start: 20160125, end: 20231011

REACTIONS (2)
  - Agranulocytosis [Recovered/Resolved]
  - Pyrexia [Recovered/Resolved]

NARRATIVE: CASE EVENT DATE: 20231011
